FAERS Safety Report 24728632 (Version 1)
Quarter: 2024Q4

REPORT INFORMATION
  Report Type: Spontaneous
  Country: CN (occurrence: CN)
  Receive Date: 20241212
  Receipt Date: 20241212
  Transmission Date: 20250115
  Serious: Yes (Other)
  Sender: ELI LILLY AND COMPANY
  Company Number: CN-Merck Healthcare KGaA-2024065051

PATIENT
  Age: 57 Year
  Sex: Male
  Weight: 70 kg

DRUGS (6)
  1. ERBITUX [Suspect]
     Active Substance: CETUXIMAB
     Indication: Pharyngeal cancer
     Dosage: 700 MG, UNKNOWN
     Route: 041
     Dates: start: 20241122, end: 20241122
  2. DOCETAXEL [Suspect]
     Active Substance: DOCETAXEL
     Indication: Pharyngeal cancer
     Dosage: 130 MG, DAILY
     Route: 041
     Dates: start: 20241122, end: 20241122
  3. CISPLATIN [Suspect]
     Active Substance: CISPLATIN
     Indication: Pharyngeal cancer
     Dosage: 70 MG, DAILY
     Route: 041
     Dates: start: 20241122, end: 20241123
  4. SODIUM CHLORIDE [Concomitant]
     Active Substance: SODIUM CHLORIDE
     Indication: Product used for unknown indication
     Dosage: 250 ML, DAILY
     Route: 041
     Dates: start: 20241122, end: 20241122
  5. SODIUM CHLORIDE [Concomitant]
     Active Substance: SODIUM CHLORIDE
     Dosage: 360 ML, DAILY
     Route: 041
     Dates: start: 20241122, end: 20241122
  6. SODIUM CHLORIDE [Concomitant]
     Active Substance: SODIUM CHLORIDE
     Dosage: 500 ML, DAILY
     Route: 041
     Dates: start: 20241122, end: 20241123

REACTIONS (2)
  - White blood cell count decreased [Recovered/Resolved]
  - Neutrophil count decreased [Recovered/Resolved]

NARRATIVE: CASE EVENT DATE: 20241202
